FAERS Safety Report 8457416-6 (Version None)
Quarter: 2012Q2

REPORT INFORMATION
  Report Type: 
  Country: None (occurrence: None)
  Receive Date: 20120621
  Receipt Date: 20120606
  Transmission Date: 20120825
  Serious: Yes (Other)
  Sender: FDA-Public Use
  Company Number: BR-AMGEN-BRASP2011012194

PATIENT
  Age: 20 Year
  Sex: Male
  Weight: 102 kg

DRUGS (3)
  1. ETANERCEPT [Suspect]
     Indication: ANKYLOSING SPONDYLITIS
     Dosage: UNK
     Route: 058
     Dates: start: 20110227
  2. SIMVASTATIN [Concomitant]
     Indication: BLOOD CHOLESTEROL
     Dosage: UNK
  3. OMEPRAZOLE [Concomitant]
     Indication: GASTRITIS
     Dosage: UNK

REACTIONS (4)
  - FORMICATION [None]
  - HYPERHIDROSIS [None]
  - CARDIAC DISORDER [None]
  - HEADACHE [None]
